FAERS Safety Report 6694506-2 (Version None)
Quarter: 2010Q2

REPORT INFORMATION
  Report Type: 
  Country: None (occurrence: None)
  Receive Date: 20100423
  Receipt Date: 20100413
  Transmission Date: 20101027
  Serious: Yes (Other)
  Sender: FDA-Public Use
  Company Number: US-AMGEN-QUU385812

PATIENT
  Sex: Male

DRUGS (5)
  1. ENBREL [Suspect]
     Indication: PSORIATIC ARTHROPATHY
     Route: 058
     Dates: start: 20021227
  2. UNSPECIFIED MEDICATION [Concomitant]
  3. METHOTREXATE [Concomitant]
     Dates: start: 19920401, end: 20091209
  4. IBUPROFEN [Concomitant]
     Dates: start: 19920401, end: 20091209
  5. FOLIC ACID [Concomitant]

REACTIONS (3)
  - BLOOD TESTOSTERONE DECREASED [None]
  - NUCLEAR MAGNETIC RESONANCE IMAGING BRAIN ABNORMAL [None]
  - PSYCHOTIC DISORDER [None]
